FAERS Safety Report 6752287-8 (Version None)
Quarter: 2010Q2

REPORT INFORMATION
  Report Type: 
  Country: None (occurrence: None)
  Receive Date: 20100602
  Receipt Date: 20100527
  Transmission Date: 20101027
  Serious: Yes (Life-Threatening, Other)
  Sender: FDA-Public Use
  Company Number: PHEH2009US16875

PATIENT
  Sex: Female
  Weight: 48.073 kg

DRUGS (12)
  1. LOPRESSOR [Suspect]
     Indication: PANIC ATTACK
     Dosage: 50 MG, Q12H
  2. LOPRESSOR [Suspect]
     Dosage: 25 MG, Q6H
  3. LOPRESSOR [Suspect]
     Dosage: 25 MG
  4. LOPRESSOR [Suspect]
     Dosage: 50 MG
  5. METOPROLOL TARTRATE [Suspect]
  6. VALIUM [Suspect]
     Dosage: ^1/2 TABLET OF 0.25 MG^, THREE TIMES DAILY
  7. VALIUM [Suspect]
     Dosage: ^1 TABLET OF 0.25 MG^, THREE TIMES DAILY
  8. VALIUM [Suspect]
     Dosage: ^1/2 TABLET^, FOUR TIMES DAILY
  9. TOPROL-XL [Suspect]
  10. KLONOPIN [Suspect]
  11. ZENEX [Suspect]
  12. FEMHRT [Suspect]
     Indication: HORMONE LEVEL ABNORMAL

REACTIONS (10)
  - ACTIVITIES OF DAILY LIVING IMPAIRED [None]
  - ANXIETY [None]
  - APPARENT DEATH [None]
  - DEPRESSION [None]
  - DRUG INTOLERANCE [None]
  - MALAISE [None]
  - PANIC ATTACK [None]
  - PERIARTHRITIS [None]
  - SOMNOLENCE [None]
  - WEIGHT DECREASED [None]
